FAERS Safety Report 6179514-2 (Version None)
Quarter: 2009Q2

REPORT INFORMATION
  Report Type: 
  Country: None (occurrence: None)
  Receive Date: 20090505
  Receipt Date: 20090406
  Transmission Date: 20091009
  Serious: Yes (Other)
  Sender: FDA-Public Use
  Company Number: US-PFIZER INC-2009181870

PATIENT
  Sex: Male

DRUGS (2)
  1. LYRICA [Suspect]
  2. GABAPENTIN [Suspect]

REACTIONS (5)
  - DRUG DOSE OMISSION [None]
  - DRUG INEFFECTIVE [None]
  - ILL-DEFINED DISORDER [None]
  - MALAISE [None]
  - VOMITING [None]
